FAERS Safety Report 5038423-2 (Version None)
Quarter: 2006Q2

REPORT INFORMATION
  Report Type: 
  Country: None (occurrence: None)
  Receive Date: 20060629
  Receipt Date: 20060616
  Transmission Date: 20061013
  Serious: Yes (Hospitalization)
  Sender: FDA-Public Use
  Company Number: PHRM2006FR01811

PATIENT
  Age: 81 Year
  Sex: Female
  Weight: 78 kg

DRUGS (6)
  1. LEVOTHYROX [Concomitant]
     Indication: HYPOTHYROIDISM
     Dosage: 75 UG, QD
     Route: 048
  2. MOGADON [Concomitant]
     Dosage: 10 MG/DAY
     Route: 048
  3. LAROXYL [Suspect]
     Indication: DYSTHYMIC DISORDER
     Dosage: 2 DF, QD
     Route: 048
     Dates: end: 20060326
  4. LAROXYL [Suspect]
     Route: 048
     Dates: start: 20060401, end: 20060417
  5. RIVOTRIL [Concomitant]
     Dosage: 5 DF, QD
     Route: 048
  6. COTAREG [Suspect]
     Indication: ESSENTIAL HYPERTENSION
     Dosage: 1 DF, QD
     Route: 048
     Dates: end: 20060326

REACTIONS (5)
  - ANAEMIA [None]
  - BALANCE DISORDER [None]
  - DRUG INTERACTION [None]
  - FALL [None]
  - ORTHOSTATIC HYPOTENSION [None]
